FAERS Safety Report 7556834-8 (Version None)
Quarter: 2011Q2

REPORT INFORMATION
  Report Type: 
  Country: None (occurrence: None)
  Receive Date: 20110620
  Receipt Date: 20110606
  Transmission Date: 20111010
  Serious: Yes (Death, Hospitalization, Other)
  Sender: FDA-Public Use
  Company Number: US-JNJFOC-20051003160

PATIENT
  Age: 15 Year
  Sex: Male
  Weight: 38.3 kg

DRUGS (28)
  1. REMICADE [Suspect]
     Route: 042
  2. IMURAN [Concomitant]
     Dates: start: 20031109, end: 20040203
  3. IMURAN [Concomitant]
     Dates: start: 20040203, end: 20040920
  4. FEOSOL [Concomitant]
     Dates: start: 20040101, end: 20050630
  5. REMICADE [Suspect]
     Route: 042
  6. REMICADE [Suspect]
     Route: 042
  7. PREDNISONE [Concomitant]
     Dosage: START NOV-2001 AT 20MG OD, DOSES FROM 2.5MG QOD TO 5MG OD (WEANED OFF FOR SHORT PERIODS OF TIME)
  8. IMURAN [Concomitant]
     Dates: start: 20041208, end: 20050118
  9. CALCIUM + VITAMIN D [Concomitant]
     Dosage: 1 TAB OD
  10. REMICADE [Suspect]
     Route: 042
  11. IMURAN [Concomitant]
     Dates: start: 20040920, end: 20041208
  12. REMICADE [Suspect]
     Route: 042
  13. ZANTAC [Concomitant]
     Dates: start: 20040920, end: 20050630
  14. HUMAN GROWTH HORMONE [Concomitant]
     Dosage: DAILY INJECTIONS
     Dates: start: 20050301
  15. REMICADE [Suspect]
     Indication: CROHN'S DISEASE
     Dosage: PATIENT RECEIVED 13 TREATMENTS.
     Route: 042
     Dates: start: 20040201
  16. REMICADE [Suspect]
     Route: 042
  17. REMICADE [Suspect]
     Route: 042
  18. FORVIA [Concomitant]
     Dates: start: 20050119, end: 20050630
  19. REMICADE [Suspect]
     Route: 042
  20. MERCAPTOPURINE [Concomitant]
  21. IMURAN [Concomitant]
     Dates: start: 20030414, end: 20031109
  22. REMICADE [Suspect]
     Dosage: PATIENT RECEIVED 13 TREATMENTS.
     Route: 042
     Dates: start: 20040211
  23. IMURAN [Concomitant]
     Dates: start: 20050119, end: 20050630
  24. ASACOL [Concomitant]
     Dosage: 2 TABS BID
     Dates: start: 20031101, end: 20050601
  25. REMICADE [Suspect]
     Route: 042
     Dates: end: 20050615
  26. REMICADE [Suspect]
     Route: 042
  27. REMICADE [Suspect]
     Route: 042
  28. IMURAN [Concomitant]
     Dates: start: 20030101, end: 20030414

REACTIONS (4)
  - RESPIRATORY FAILURE [None]
  - LACTIC ACIDOSIS [None]
  - DISSEMINATED INTRAVASCULAR COAGULATION [None]
  - HEPATOSPLENIC T-CELL LYMPHOMA [None]
